FAERS Safety Report 6639338-6 (Version None)
Quarter: 2010Q1

REPORT INFORMATION
  Report Type: 
  Country: None (occurrence: None)
  Receive Date: 20100315
  Receipt Date: 20100301
  Transmission Date: 20100710
  Serious: Yes (Life-Threatening, Other)
  Sender: FDA-Public Use
  Company Number: AVE_01613_2010

PATIENT
  Sex: Male

DRUGS (5)
  1. CLONIDINE HYDROCHLORIDE [Suspect]
     Indication: HYPERTENSION
     Dosage: 1 DF QD, VIA 1/WEEKLY PATCH TRANSDERMAL
     Route: 062
  2. LIPITOR [Concomitant]
  3. SYNTHROID [Concomitant]
  4. FUROSEMIDE [Concomitant]
  5. BYSTOLIC [Concomitant]

REACTIONS (5)
  - BLOOD PRESSURE INCREASED [None]
  - BRADYCARDIA [None]
  - HYPOTENSION [None]
  - PRODUCT QUALITY ISSUE [None]
  - REBOUND EFFECT [None]
